FAERS Safety Report 6727622-7 (Version None)
Quarter: 2010Q2

REPORT INFORMATION
  Report Type: 
  Country: None (occurrence: None)
  Receive Date: 20100512
  Receipt Date: 20100430
  Transmission Date: 20101027
  Serious: Yes (Life-Threatening, Hospitalization)
  Sender: FDA-Public Use
  Company Number: IPC201004-000123

PATIENT
  Age: 74 Year
  Sex: Female

DRUGS (3)
  1. HYDROCHLOROTHIAZIDE [Suspect]
     Indication: HYPERTENSION
     Dosage: 1 CO/DAY
  2. LISINOPRIL [Suspect]
     Dosage: 1 CO/DAY
  3. BISOPROLOL [Concomitant]

REACTIONS (6)
  - ANGIOEDEMA [None]
  - BLINDNESS CORTICAL [None]
  - CARDIAC ARREST [None]
  - COMA [None]
  - EPILEPSY [None]
  - NO THERAPEUTIC RESPONSE [None]
